FAERS Safety Report 11275061 (Version 1)
Quarter: 2015Q3

REPORT INFORMATION
  Report Type: Spontaneous
  Country: US (occurrence: US)
  Receive Date: 20150716
  Receipt Date: 20150716
  Transmission Date: 20151125
  Serious: Yes (Death)
  Sender: FDA-Public Use
  Company Number: US-BEH-2015052295

PATIENT
  Sex: Male
  Weight: 90 kg

DRUGS (24)
  1. LMX [Concomitant]
     Active Substance: LIDOCAINE
  2. PREDNISONE. [Concomitant]
     Active Substance: PREDNISONE
  3. LIDOCAINE/PRILOCAINE [Concomitant]
  4. TUMS [Concomitant]
     Active Substance: CALCIUM CARBONATE
  5. POTASSIUM [Concomitant]
     Active Substance: POTASSIUM
  6. DOCUSATE [Concomitant]
     Active Substance: DOCUSATE
  7. RED YEAST RICE [Concomitant]
     Active Substance: DIETARY SUPPLEMENT
  8. EPIPEN [Concomitant]
     Active Substance: EPINEPHRINE
  9. FENTANYL. [Concomitant]
     Active Substance: FENTANYL
  10. HIZENTRA [Suspect]
     Active Substance: HUMAN IMMUNOGLOBULIN G
     Route: 058
  11. HIZENTRA [Suspect]
     Active Substance: HUMAN IMMUNOGLOBULIN G
     Indication: IMMUNODEFICIENCY COMMON VARIABLE
     Route: 058
  12. VITAMIN D [Concomitant]
     Active Substance: CHOLECALCIFEROL
  13. VITAMIN B [Concomitant]
     Active Substance: VITAMIN B
  14. HYDROMORPHONE [Concomitant]
     Active Substance: HYDROMORPHONE
  15. VALTREX [Concomitant]
     Active Substance: VALACYCLOVIR HYDROCHLORIDE
  16. DIPHENHYDRAMINE. [Concomitant]
     Active Substance: DIPHENHYDRAMINE
  17. ACETAMINOPHEN. [Concomitant]
     Active Substance: ACETAMINOPHEN
  18. ASPIRIN. [Concomitant]
     Active Substance: ASPIRIN
  19. MAGNESIUM [Concomitant]
     Active Substance: MAGNESIUM
  20. MULTIVITAMINS [Concomitant]
     Active Substance: VITAMINS
  21. VITAMIN C [Concomitant]
     Active Substance: ASCORBIC ACID
  22. HERBAL NOS [Concomitant]
     Active Substance: HERBALS
  23. LASIX [Concomitant]
     Active Substance: FUROSEMIDE
  24. IRON [Concomitant]
     Active Substance: IRON

REACTIONS (1)
  - Death [Fatal]
